FAERS Safety Report 23684011 (Version 1)
Quarter: 2024Q1

REPORT INFORMATION
  Report Type: Spontaneous
  Country: CN (occurrence: CN)
  Receive Date: 20240328
  Receipt Date: 20240328
  Transmission Date: 20240410
  Serious: Yes (Hospitalization, Other)
  Sender: FDA-Public Use
  Company Number: CN-FreseniusKabi-FK202405018

PATIENT
  Age: 54 Year
  Sex: Male
  Weight: 88 kg

DRUGS (4)
  1. PROPOFOL [Suspect]
     Active Substance: PROPOFOL
     Indication: General anaesthesia
     Dosage: FORM OF ADMIN: EMULSION FOR INFUSION/INJECTION?ROUTE OF ADMIN: INTRAVENOUS INJECTION
     Dates: start: 20240305, end: 20240305
  2. PROPOFOL [Suspect]
     Active Substance: PROPOFOL
     Indication: Gastric polyps
  3. SODIUM CHLORIDE [Concomitant]
     Active Substance: SODIUM CHLORIDE
     Indication: Fluid replacement
     Dosage: FOA-INJECTION
     Route: 041
     Dates: start: 20240305, end: 20240305
  4. SODIUM CHLORIDE [Concomitant]
     Active Substance: SODIUM CHLORIDE
     Indication: Vehicle solution use

REACTIONS (4)
  - Dyspnoea [Recovering/Resolving]
  - Respiratory failure [Recovering/Resolving]
  - Blood pressure decreased [Recovering/Resolving]
  - Bradycardia [Recovering/Resolving]

NARRATIVE: CASE EVENT DATE: 20240305
